FAERS Safety Report 5311227-9 (Version None)
Quarter: 2007Q2

REPORT INFORMATION
  Report Type: 
  Country: None (occurrence: None)
  Receive Date: 20070430
  Receipt Date: 20070417
  Transmission Date: 20071010
  Serious: Yes (Hospitalization)
  Sender: FDA-Public Use
  Company Number: PHHO2007JP04508

PATIENT
  Age: 70 Year
  Sex: Female
  Weight: 51 kg

DRUGS (8)
  1. DIOVAN [Suspect]
     Indication: HYPERTENSION
     Dosage: 40 MG, UNK
     Route: 048
     Dates: start: 20030914, end: 20060720
  2. VASOLAN [Concomitant]
     Indication: ATRIAL FIBRILLATION
     Dosage: UNK, UNK
  3. CIBENOL [Concomitant]
     Indication: ATRIAL FIBRILLATION
     Dosage: UNK, UNK
  4. FRANDOL [Concomitant]
     Indication: ANGINA PECTORIS
     Dosage: UNK, UNK
  5. GASTER D [Concomitant]
     Indication: GASTRITIS
     Dosage: UNK, UNK
  6. LENDORMIN [Concomitant]
     Indication: INSOMNIA
     Dosage: UNK, UNK
  7. DEPAS [Concomitant]
     Indication: INSOMNIA
     Dosage: UNK, UNK
  8. HUMACART-N [Concomitant]
     Indication: DIABETES MELLITUS
     Dosage: UNK, UNK

REACTIONS (4)
  - CEREBRAL INFARCTION [None]
  - FACIAL PALSY [None]
  - MUSCULAR WEAKNESS [None]
  - THROMBOTIC STROKE [None]
